FAERS Safety Report 4478933-X (Version None)
Quarter: 2004Q4

REPORT INFORMATION
  Report Type: 
  Country: None (occurrence: None)
  Receive Date: 20041014
  Receipt Date: 20040927
  Transmission Date: 20050328
  Serious: Yes (Hospitalization)
  Sender: FDA-Public Use
  Company Number: DSA_25038_2004

PATIENT
  Age: 20 Year
  Sex: Female

DRUGS (3)
  1. TAVOR [Suspect]
     Dosage: 10 MG ONCE PO
     Route: 048
     Dates: start: 20040924, end: 20040924
  2. EUNERPAN [Suspect]
     Dosage: 250 MG ONCE PO
     Route: 048
     Dates: start: 20040924, end: 20040924
  3. TRIMIPRAMINE [Suspect]
     Dosage: 1000 MG ONCE PO
     Route: 047
     Dates: start: 20040924, end: 20040924

REACTIONS (5)
  - INTENTIONAL OVERDOSE [None]
  - MYDRIASIS [None]
  - SOMNOLENCE [None]
  - TACHYCARDIA [None]
  - TREMOR [None]
